FAERS Safety Report 19869318 (Version 1)
Quarter: 2021Q3

REPORT INFORMATION
  Report Type: Spontaneous
  Country: FR (occurrence: FR)
  Receive Date: 20210922
  Receipt Date: 20210922
  Transmission Date: 20211014
  Serious: Yes (Other)
  Sender: FDA-Public Use
  Company Number: FR-BAYER-2021-213409

PATIENT
  Age: 59 Year
  Sex: Male

DRUGS (2)
  1. CLARITINE 10 MG [Suspect]
     Active Substance: LORATADINE
     Indication: ANTIALLERGIC THERAPY
     Dosage: 1 DF, QD
     Route: 048
     Dates: start: 202012, end: 20210310
  2. CRESTOR [Concomitant]
     Active Substance: ROSUVASTATIN CALCIUM
     Dosage: UNK

REACTIONS (2)
  - Oedema peripheral [Recovered/Resolved]
  - Pruritus [Recovered/Resolved]

NARRATIVE: CASE EVENT DATE: 202102
